FAERS Safety Report 24293375 (Version 1)
Quarter: 2024Q3

REPORT INFORMATION
  Report Type: Spontaneous
  Country: US (occurrence: None)
  Receive Date: 20240906
  Receipt Date: 20240906
  Transmission Date: 20241016
  Serious: No
  Sender: DOMPE FARMACEUTICI
  Company Number: US-FARMAPROD-202401-0043

PATIENT
  Age: 65 Year
  Sex: Female

DRUGS (14)
  1. OXERVATE [Suspect]
     Active Substance: CENEGERMIN-BKBJ
     Indication: Neurotrophic keratopathy
     Route: 047
     Dates: start: 20231213
  2. OXERVATE [Suspect]
     Active Substance: CENEGERMIN-BKBJ
     Indication: Hypoaesthesia eye
  3. OXERVATE [Suspect]
     Active Substance: CENEGERMIN-BKBJ
  4. CETIRIZINE HYDROCHLORIDE [Concomitant]
     Active Substance: CETIRIZINE HYDROCHLORIDE
  5. HYDROXYUREA [Concomitant]
     Active Substance: HYDROXYUREA
  6. BENADRYL [Concomitant]
     Active Substance: DIPHENHYDRAMINE HYDROCHLORIDE
  7. CALCIUM [Concomitant]
     Active Substance: CALCIUM
     Dosage: 500(1250)
  8. VITAMIN C [Concomitant]
     Active Substance: ASCORBIC ACID
  9. VITAMIN D3 [Concomitant]
     Active Substance: CHOLECALCIFEROL
  10. ASPIRIN [Concomitant]
     Active Substance: ASPIRIN
  11. DOXYCYCLINE HYCLATE [Concomitant]
     Active Substance: DOXYCYCLINE HYCLATE
  12. LEVOTHYROXINE SODIUM [Concomitant]
     Active Substance: LEVOTHYROXINE SODIUM
  13. TEARS LUBRICANT [Concomitant]
     Active Substance: GLYCERIN\HYPROMELLOSES\POLYETHYLENE GLYCOL 400
  14. LISINOPRIL [Concomitant]
     Active Substance: LISINOPRIL

REACTIONS (1)
  - Nasopharyngitis [Not Recovered/Not Resolved]

NARRATIVE: CASE EVENT DATE: 20231201
